FAERS Safety Report 7224661-7 (Version None)
Quarter: 2011Q1

REPORT INFORMATION
  Report Type: 
  Country: None (occurrence: None)
  Receive Date: 20110113
  Receipt Date: 20110104
  Transmission Date: 20110831
  Serious: Yes (Hospitalization)
  Sender: FDA-Public Use
  Company Number: ES-NOVOPROD-321145

PATIENT
  Age: 75 Year
  Sex: Female

DRUGS (2)
  1. NOVORAPID FLEXPEN [Suspect]
     Indication: PRODUCT USED FOR UNKNOWN INDICATION
     Dosage: UNK
     Route: 065
  2. METFORMIN HCL [Concomitant]
     Dosage: UNK

REACTIONS (1)
  - METABOLIC ACIDOSIS [None]
